FAERS Safety Report 7953532-3 (Version None)
Quarter: 2011Q4

REPORT INFORMATION
  Report Type: 
  Country: None (occurrence: None)
  Receive Date: 20111202
  Receipt Date: 20111128
  Transmission Date: 20120403
  Serious: Yes (Hospitalization)
  Sender: FDA-Public Use
  Company Number: FR-PFIZER INC-2011289046

PATIENT
  Age: 83 Year
  Sex: Female

DRUGS (6)
  1. PIPERACILLIN AND TAZOBACTAM [Suspect]
     Indication: ANTIBIOTIC THERAPY
     Dosage: 4 G, 3X/DAY
     Route: 042
     Dates: start: 20111102, end: 20111107
  2. CLINDAMYCIN HYDROCHLORIDE [Concomitant]
     Dosage: 600 MG/ML, 1X/DAY
     Route: 042
     Dates: start: 20111029, end: 20111030
  3. FLAGYL [Concomitant]
     Dosage: 500 MG, 3X/DAY
     Route: 048
     Dates: start: 20111030, end: 20111102
  4. ROCEPHIN [Concomitant]
     Dosage: 2 G, 1X/DAY
     Route: 042
     Dates: start: 20111030, end: 20111102
  5. ROCEPHIN [Concomitant]
     Dosage: 2 G, 1X/DAY
     Dates: start: 20111107
  6. VANCOMYCIN [Concomitant]
     Dosage: 1.5 G, 1X/DAY
     Route: 042
     Dates: start: 20111107, end: 20111115

REACTIONS (1)
  - ACUTE GENERALISED EXANTHEMATOUS PUSTULOSIS [None]
